FAERS Safety Report 13580324 (Version 2)
Quarter: 2017Q3

REPORT INFORMATION
  Report Type: Report from Study
  Country: US (occurrence: US)
  Receive Date: 20170525
  Receipt Date: 20170818
  Transmission Date: 20171127
  Serious: Yes (Other)
  Sender: FDA-Public Use
  Company Number: US-SHIRE-US201711366

PATIENT
  Age: 65 Year
  Sex: Female
  Weight: 79.37 kg

DRUGS (1)
  1. XIIDRA [Suspect]
     Active Substance: LIFITEGRAST
     Indication: DRY EYE
     Dosage: 1 GTT (BOTH EYES), 2X/DAY:BID
     Route: 047
     Dates: start: 20170515

REACTIONS (6)
  - Transient ischaemic attack [Unknown]
  - Excessive eye blinking [Not Recovered/Not Resolved]
  - Product storage error [Recovered/Resolved]
  - Product quality issue [Unknown]
  - Underdose [Not Recovered/Not Resolved]
  - Instillation site pain [Not Recovered/Not Resolved]

NARRATIVE: CASE EVENT DATE: 20170517
